FAERS Safety Report 19423723 (Version 1)
Quarter: 2021Q2

REPORT INFORMATION
  Report Type: Spontaneous
  Country: PL (occurrence: PL)
  Receive Date: 20210616
  Receipt Date: 20210616
  Transmission Date: 20210717
  Serious: Yes (Hospitalization, Other)
  Sender: FDA-Public Use
  Company Number: PL-SAMSUNG BIOEPIS-SB-2021-14160

PATIENT
  Age: 52 Year
  Sex: Male

DRUGS (9)
  1. PYRAZINAMIDE. [Concomitant]
     Active Substance: PYRAZINAMIDE
     Dosage: UNKNOWN
     Route: 065
     Dates: end: 201812
  2. RIFAMPICIN [Concomitant]
     Active Substance: RIFAMPIN
     Dosage: UNKNOWN
     Route: 065
     Dates: end: 201910
  3. PYRAZINAMIDE. [Concomitant]
     Active Substance: PYRAZINAMIDE
     Indication: TUBERCULOSIS
     Dosage: UNKNOWN
     Route: 065
     Dates: end: 201804
  4. ADALIMUMAB [Suspect]
     Active Substance: ADALIMUMAB
     Indication: PSORIATIC ARTHROPATHY
     Dosage: UNKNOWN
     Route: 065
  5. RIFAMPICIN [Concomitant]
     Active Substance: RIFAMPIN
     Indication: PROPHYLACTIC CHEMOTHERAPY
     Dosage: UNKNOWN
     Route: 065
  6. ETHAMBUTOL [Suspect]
     Active Substance: ETHAMBUTOL HYDROCHLORIDE
     Indication: TUBERCULOSIS
     Dosage: UNKNOWN
     Route: 065
     Dates: end: 201804
  7. RIFAMPICIN [Concomitant]
     Active Substance: RIFAMPIN
     Indication: TUBERCULOSIS
     Dosage: UNKNOWN
     Route: 065
     Dates: end: 201804
  8. ETHAMBUTOL [Suspect]
     Active Substance: ETHAMBUTOL HYDROCHLORIDE
     Dosage: UNKNOWN
     Route: 065
     Dates: end: 201812
  9. RIFAMPICIN [Concomitant]
     Active Substance: RIFAMPIN
     Dosage: UNKNOWN
     Route: 065
     Dates: end: 201812

REACTIONS (8)
  - Psoriatic arthropathy [Recovering/Resolving]
  - Renal cyst [Unknown]
  - Ocular fistula [Unknown]
  - Cystoid macular oedema [Unknown]
  - Necrotising scleritis [Unknown]
  - Cataract subcapsular [Unknown]
  - Visual impairment [Unknown]
  - Iris adhesions [Unknown]
